FAERS Safety Report 6310776-4 (Version None)
Quarter: 2009Q3

REPORT INFORMATION
  Report Type: 
  Country: None (occurrence: None)
  Receive Date: 20090812
  Receipt Date: 20090729
  Transmission Date: 20100115
  Serious: Yes (Death, Hospitalization)
  Sender: FDA-Public Use
  Company Number: 2008AL012230

PATIENT
  Age: 68 Year
  Sex: Female

DRUGS (63)
  1. DIGOXIN [Suspect]
     Indication: ATRIAL FIBRILLATION
     Dosage: 0.25MG, DAILY, PO
     Route: 048
  2. DIGOXIN [Suspect]
     Indication: CARDIAC FAILURE CONGESTIVE
     Dosage: 0.25MG, DAILY, PO
     Route: 048
  3. LODINE [Concomitant]
  4. TARKA [Concomitant]
  5. GLUCOPHAGE [Concomitant]
  6. GLUCOTROL [Concomitant]
  7. PREDNISONE [Concomitant]
  8. DARVOCET [Concomitant]
  9. HYDROCHLOROTHIAZIDE [Concomitant]
  10. MULTI-VITAMINS [Concomitant]
  11. FISH OIL [Concomitant]
  12. CALCIUM [Concomitant]
  13. ASPIRIN [Concomitant]
  14. SULFASALAZINE [Concomitant]
  15. FOLIC ACID [Concomitant]
  16. LANTUS [Concomitant]
  17. HUMALOG [Concomitant]
  18. WELCHOL [Concomitant]
  19. NEXIUM [Concomitant]
  20. TOPROL-XL [Concomitant]
  21. .............. [Concomitant]
  22. AVAPRO [Concomitant]
  23. AZULFIDINE EN-TABS [Concomitant]
  24. PRILOSEC [Concomitant]
  25. TIKOSYN [Concomitant]
  26. AMLODIPINE [Concomitant]
  27. METHOTREXATE [Concomitant]
  28. FLUZONE [Concomitant]
  29. AZITHROPRINE [Concomitant]
  30. QUININE SULFATE [Concomitant]
  31. OMEPRAZOLE [Concomitant]
  32. FLUARIX [Concomitant]
  33. NITROGLYCERIN [Concomitant]
  34. PROPOX-N/APA [Concomitant]
  35. VALTREX [Concomitant]
  36. LISINOPRIL [Concomitant]
  37. METOPROLOL [Concomitant]
  38. SIMVASTATIN [Concomitant]
  39. PACERONE [Concomitant]
  40. WARFARIN SODIUM [Concomitant]
  41. MAGNESIM OXIDE [Concomitant]
  42. AMOXICILLIN [Concomitant]
  43. KETOCONAZOLE [Concomitant]
  44. PROMETHAZINE DM [Concomitant]
  45. CEPHALEXIN [Concomitant]
  46. METFORMIN HCL [Concomitant]
  47. ETODOLAC [Concomitant]
  48. METHYLPREDNISOLONE [Concomitant]
  49. ZETIA [Concomitant]
  50. ENBREL [Concomitant]
  51. ATENOLOL [Concomitant]
  52. COZAAR [Concomitant]
  53. LEUCOVORIN CALCIUM [Concomitant]
  54. PREVIDENT [Concomitant]
  55. ARAVA [Concomitant]
  56. LODINE XL [Concomitant]
  57. VIOXX [Concomitant]
  58. HYDROXYCHLOROQUINE SULFATE [Concomitant]
  59. ACTOS [Concomitant]
  60. AMIODARONE [Concomitant]
  61. VITAMIN-MINERAL COMPOUND TAB [Concomitant]
  62. NOVLOG [Concomitant]
  63. RITUXAN [Concomitant]

REACTIONS (23)
  - ABASIA [None]
  - ABDOMINAL PAIN UPPER [None]
  - ANAEMIA [None]
  - ARTERIOVENOUS MALFORMATION [None]
  - ATRIAL FIBRILLATION [None]
  - ATRIAL FLUTTER [None]
  - ATRIOVENTRICULAR BLOCK COMPLETE [None]
  - BLOOD GLUCOSE INCREASED [None]
  - BRADYCARDIA [None]
  - CHEST DISCOMFORT [None]
  - DIABETIC KETOACIDOSIS [None]
  - DYSPNOEA [None]
  - ECONOMIC PROBLEM [None]
  - HEART RATE INCREASED [None]
  - HYPOMAGNESAEMIA [None]
  - HYPOTENSION [None]
  - MALAISE [None]
  - MELAENA [None]
  - PAIN [None]
  - PAIN IN JAW [None]
  - PALPITATIONS [None]
  - THERAPEUTIC AGENT TOXICITY [None]
  - UPPER GASTROINTESTINAL HAEMORRHAGE [None]
